FAERS Safety Report 15265403 (Version 1)
Quarter: 2018Q3

REPORT INFORMATION
  Report Type: Spontaneous
  Country: US (occurrence: US)
  Receive Date: 20180723
  Receipt Date: 20180723
  Transmission Date: 20181010
  Serious: No
  Sender: FDA-Public Use
  Company Number: None

PATIENT
  Age: 28 Year
  Sex: Female
  Weight: 76.5 kg

DRUGS (3)
  1. GENERIC SUBOXONE [Concomitant]
  2. IBUPROFEN. [Concomitant]
     Active Substance: IBUPROFEN
  3. BUPRENORPHIN?NALOXON 8?2 MG TABLETS [Suspect]
     Active Substance: BUPRENORPHINE\NALOXONE
     Indication: DEPENDENCE
     Dosage: ?          QUANTITY:1 TABLET(S);?
     Route: 060

REACTIONS (5)
  - Diarrhoea [None]
  - Depression [None]
  - Product substitution issue [None]
  - Drug ineffective [None]
  - Cold sweat [None]

NARRATIVE: CASE EVENT DATE: 20180714
